FAERS Safety Report 18814174 (Version 1)
Quarter: 2021Q1

REPORT INFORMATION
  Report Type: Report from Study
  Country: None (occurrence: GB)
  Receive Date: 20210201
  Receipt Date: 20210201
  Transmission Date: 20210419
  Serious: Yes (Hospitalization)
  Sender: FDA-Public Use
  Company Number: GB-ABBVIE-21K-167-3746307-00

PATIENT
  Age: 75 Year
  Sex: Female

DRUGS (65)
  1. DEXAMETHASONE. [Suspect]
     Active Substance: DEXAMETHASONE
     Dosage: CYCLE 1? 8: ON DAYS 1, 2, 4, 5, 8, 9, 11 AND 12 OF 21 DAY CYCLE
     Route: 048
     Dates: start: 20170404, end: 20190927
  2. BONJELA [Concomitant]
     Active Substance: CETALKONIUM CHLORIDE\CHOLINE SALICYLATE\MENTHOL
     Indication: MOUTH ULCERATION
     Dosage: 1 APPLICATION AS NEEDED (AS REQUIRED)
     Route: 048
     Dates: start: 20170619
  3. SALBUTAMOL [Concomitant]
     Active Substance: ALBUTEROL
     Indication: PNEUMONIA
  4. SANDO K [Concomitant]
     Route: 048
     Dates: start: 20170415, end: 20170415
  5. DULOXETINE HYDROCHLORIDE. [Concomitant]
     Active Substance: DULOXETINE HYDROCHLORIDE
     Indication: PAIN IN EXTREMITY
     Route: 048
     Dates: start: 20180830
  6. ZOMETA [Concomitant]
     Active Substance: ZOLEDRONIC ACID
     Indication: BONE LESION
     Route: 042
     Dates: start: 201312
  7. VENETOCLAX. [Suspect]
     Active Substance: VENETOCLAX
     Indication: PLASMA CELL MYELOMA
     Route: 048
     Dates: start: 20190308
  8. VENETOCLAX. [Suspect]
     Active Substance: VENETOCLAX
     Route: 048
     Dates: start: 20170530, end: 20190223
  9. VELCADE [Suspect]
     Active Substance: BORTEZOMIB
     Dosage: CYCLE 9 AND BEYOND: ON DAYS 1, 8, 15 AND 22 OF 35 DAY CYCLE
     Route: 058
     Dates: start: 20190726, end: 20191018
  10. PARACETAMOL [Concomitant]
     Active Substance: ACETAMINOPHEN
     Indication: HEADACHE
     Route: 048
     Dates: start: 20170410, end: 20170418
  11. VALACYCLOVIR [Concomitant]
     Active Substance: VALACYCLOVIR HYDROCHLORIDE
     Indication: ANTIVIRAL PROPHYLAXIS
     Route: 048
     Dates: start: 20170604
  12. SANDO K [Concomitant]
     Route: 048
     Dates: start: 20171231, end: 20180104
  13. SANDO K [Concomitant]
     Dosage: ) 1 TABLET (1 TABLET,1 IN 1 D)
     Route: 048
     Dates: start: 20190117, end: 20190506
  14. SANDO K [Concomitant]
     Route: 048
     Dates: start: 20181225, end: 20181227
  15. BECLOMETASONE [Concomitant]
     Active Substance: BECLOMETHASONE DIPROPIONATE
     Indication: ASTHMA
     Route: 048
     Dates: start: 1997
  16. MAGNESIUM [Concomitant]
     Active Substance: MAGNESIUM
     Indication: MUSCLE SPASMS
     Dosage: 1 SACHET
     Route: 048
     Dates: start: 20171221
  17. VISCOTEARS [Concomitant]
     Active Substance: CARBOMER
     Indication: DRY EYE
     Dosage: 1 DROP
     Route: 061
     Dates: start: 20181225
  18. DIFFLAM [BENZYDAMINE] [Concomitant]
     Active Substance: BENZYDAMINE
     Indication: MOUTH ULCERATION
     Dosage: 5 ? 10 ML AS NEEDED (AS REQUIRED)
     Route: 048
     Dates: start: 20170619
  19. LEVOFLOXACIN. [Concomitant]
     Active Substance: LEVOFLOXACIN
     Indication: ANTIBIOTIC PROPHYLAXIS
     Route: 048
     Dates: start: 20191011
  20. LEVOFLOXACIN. [Concomitant]
     Active Substance: LEVOFLOXACIN
     Route: 048
     Dates: start: 20190322, end: 20191004
  21. LOPERAMIDE HYDROCHLORIDE. [Concomitant]
     Active Substance: LOPERAMIDE HYDROCHLORIDE
     Indication: DIARRHOEA
     Route: 048
     Dates: start: 201705
  22. DEXAMETHASONE. [Suspect]
     Active Substance: DEXAMETHASONE
     Dosage: CYCLE 9 AND BEYOND ON DAYS 1, 2, 8, 9, 15, 16, 22 AND 23 OF 35 DAY CYCLE
     Route: 048
     Dates: start: 20171003, end: 20190511
  23. PARACETAMOL [Concomitant]
     Active Substance: ACETAMINOPHEN
     Indication: LOWER RESPIRATORY TRACT INFECTION
  24. PARACETAMOL [Concomitant]
     Active Substance: ACETAMINOPHEN
     Indication: ARTHRALGIA
  25. METRONIDAZOLE. [Concomitant]
     Active Substance: METRONIDAZOLE
     Indication: PRODUCT USED FOR UNKNOWN INDICATION
     Route: 048
     Dates: start: 20181222
  26. SALBUTAMOL [Concomitant]
     Active Substance: ALBUTEROL
     Indication: DYSPNOEA
     Route: 048
     Dates: start: 1997, end: 20181220
  27. SALBUTAMOL [Concomitant]
     Active Substance: ALBUTEROL
     Indication: ASTHMA
     Route: 055
     Dates: start: 20181221
  28. SANDO K [Concomitant]
     Dosage: ) 1 TABLET (1 TABLET,1 IN 1 D)
     Route: 048
     Dates: start: 20181224, end: 20181224
  29. CETIRIZINE HYDROCHLORIDE. [Concomitant]
     Active Substance: CETIRIZINE HYDROCHLORIDE
     Indication: SEASONAL ALLERGY
     Route: 048
     Dates: start: 20170422
  30. MAGNESIUM ASPARTATE [Concomitant]
     Active Substance: MAGNESIUM ASPARTATE
     Indication: HYPOMAGNESAEMIA
     Route: 048
     Dates: start: 20190117
  31. VENETOCLAX. [Suspect]
     Active Substance: VENETOCLAX
     Route: 048
     Dates: start: 20170404, end: 20170522
  32. VELCADE [Suspect]
     Active Substance: BORTEZOMIB
     Indication: PLASMA CELL MYELOMA
     Route: 058
     Dates: start: 20131217, end: 20140916
  33. VELCADE [Suspect]
     Active Substance: BORTEZOMIB
     Dosage: CYCLE 1?8: ON DAYS 1, 4, 8 AND 11 OF 21 DAY CYCLE
     Route: 058
     Dates: start: 20170530, end: 20170926
  34. SANDO K [Concomitant]
     Indication: HYPOKALAEMIA
     Route: 048
     Dates: start: 20190523
  35. SANDO K [Concomitant]
     Route: 048
     Dates: start: 20170413, end: 20170413
  36. SANDO K [Concomitant]
     Route: 048
     Dates: start: 20180321, end: 20180325
  37. GAVISCON [Concomitant]
     Active Substance: ALUMINUM HYDROXIDE\MAGNESIUM CARBONATE
     Indication: FLATULENCE
     Dosage: 5 ML,AS REQUIRED
     Route: 048
     Dates: start: 20170626
  38. VELCADE [Suspect]
     Active Substance: BORTEZOMIB
     Dosage: CYCLE 9 AND BEYOND: ON DAYS 1, 8, 15 AND 22 OF 35 DAY CYCLE
     Route: 058
     Dates: start: 20191213
  39. PARACETAMOL [Concomitant]
     Active Substance: ACETAMINOPHEN
     Indication: PNEUMONIA
  40. QUININE SULPHATE [Concomitant]
     Active Substance: QUININE SULFATE
     Indication: PROPHYLAXIS
     Route: 048
     Dates: start: 20180322
  41. BACTRIM [Concomitant]
     Active Substance: SULFAMETHOXAZOLE\TRIMETHOPRIM
     Route: 048
     Dates: start: 20190322, end: 20191004
  42. DEXAMETHASONE. [Suspect]
     Active Substance: DEXAMETHASONE
     Indication: PLASMA CELL MYELOMA
     Dosage: CYCLE 9 AND BEYOND: ON DAYS 1, 2, 8, 9, 15, 16, 22 AND 23 OF 35 DAY CYCLE
     Route: 048
     Dates: start: 20191213
  43. VELCADE [Suspect]
     Active Substance: BORTEZOMIB
     Dosage: CYCLE 9 AND BEYOND: ON DAYS 1, 8, 15 AND 22 OF 35 DAY CYCLE
     Route: 058
     Dates: start: 20171003, end: 20190510
  44. PARACETAMOL [Concomitant]
     Active Substance: ACETAMINOPHEN
     Indication: PAIN IN EXTREMITY
  45. OMEPRAZOLE. [Concomitant]
     Active Substance: OMEPRAZOLE
     Indication: HIATUS HERNIA
     Route: 048
     Dates: start: 20181228
  46. OMEPRAZOLE. [Concomitant]
     Active Substance: OMEPRAZOLE
     Indication: OESOPHAGEAL ULCER
  47. FLUDROCORTISONE [Concomitant]
     Active Substance: FLUDROCORTISONE
     Indication: ORTHOSTATIC HYPOTENSION
     Route: 048
     Dates: start: 20190418
  48. SANDO K [Concomitant]
     Dosage: ) 1 TABLET (1 TABLET,1 IN 1 D)
     Route: 048
     Dates: start: 20180320, end: 20180320
  49. ALUDROX [Concomitant]
     Indication: HYPOMAGNESAEMIA
     Route: 048
     Dates: start: 201906
  50. CORSODYL [Concomitant]
     Active Substance: CHLORHEXIDINE GLUCONATE
     Indication: MOUTH ULCERATION
     Dosage: 5?10 ML AS REQUIRED
     Route: 048
     Dates: start: 20170604
  51. METOCLOPRAMIDE. [Concomitant]
     Active Substance: METOCLOPRAMIDE
     Indication: PROPHYLAXIS OF NAUSEA AND VOMITING
     Route: 048
     Dates: start: 20170410
  52. METOCLOPRAMIDE. [Concomitant]
     Active Substance: METOCLOPRAMIDE
     Indication: VOMITING
  53. MOVICOL [Concomitant]
     Active Substance: POLYETHYLENE GLYCOL 3350\POTASSIUM CHLORIDE\SODIUM BICARBONATE\SODIUM CHLORIDE
     Indication: CONSTIPATION
     Route: 048
     Dates: start: 20190626
  54. VENETOCLAX. [Suspect]
     Active Substance: VENETOCLAX
     Route: 048
     Dates: start: 20190524, end: 20191101
  55. DEXAMETHASONE. [Suspect]
     Active Substance: DEXAMETHASONE
     Dosage: CYCLE 9 AND BEYOND: ON DAYS 1, 2, 8, 9, 15, 16, 22 AND 23 OF 35 DAY CYCLE
     Route: 048
     Dates: start: 20190524, end: 20191019
  56. OMEPRAZOLE. [Concomitant]
     Active Substance: OMEPRAZOLE
     Indication: DYSPEPSIA
  57. SALBUTAMOL [Concomitant]
     Active Substance: ALBUTEROL
     Indication: RESPIRATORY TRACT INFECTION
  58. SANDO K [Concomitant]
     Route: 048
     Dates: start: 20170412, end: 20170412
  59. BACTRIM [Concomitant]
     Active Substance: SULFAMETHOXAZOLE\TRIMETHOPRIM
     Indication: ANTIBIOTIC PROPHYLAXIS
     Route: 048
     Dates: start: 20191011
  60. VENTOLIN [Concomitant]
     Active Substance: ALBUTEROL SULFATE
     Indication: ASTHMA
     Dosage: 4 PUFF (2 PUFF,2 IN 1 D)
     Route: 048
     Dates: start: 1988
  61. ADCAL [Concomitant]
     Indication: MINERAL SUPPLEMENTATION
     Route: 048
  62. VELCADE [Suspect]
     Active Substance: BORTEZOMIB
     Dosage: CYCLE 1?8: ON DAYS 1, 4, 8 AND 11 OF 21 DAY CYCLE
     Route: 058
     Dates: start: 20170404, end: 20170512
  63. OMEPRAZOLE. [Concomitant]
     Active Substance: OMEPRAZOLE
     Indication: BARRETT^S OESOPHAGUS
  64. ZEROBASE [Concomitant]
     Active Substance: MINERAL OIL\PARAFFIN
     Indication: DRY SKIN
     Route: 061
     Dates: start: 20181225
  65. CLENIL MODULITE [Concomitant]
     Active Substance: BECLOMETHASONE DIPROPIONATE
     Indication: LOWER RESPIRATORY TRACT INFECTION
     Dosage: 2 PUFF,21 IN 1 D
     Route: 048
     Dates: start: 20181225

REACTIONS (2)
  - C-reactive protein increased [Recovered/Resolved]
  - Rhinovirus infection [Recovered/Resolved]

NARRATIVE: CASE EVENT DATE: 20190222
